FAERS Safety Report 23468369 (Version 1)
Quarter: 2024Q1

REPORT INFORMATION
  Report Type: Spontaneous
  Country: US (occurrence: US)
  Receive Date: 20240202
  Receipt Date: 20240202
  Transmission Date: 20240410
  Serious: No
  Sender: FDA-Public Use
  Company Number: US-AUROBINDO-AUR-APL-2023-033775

PATIENT
  Age: 74 Year
  Sex: Male
  Weight: 72.5 kg

DRUGS (1)
  1. SILODOSIN [Suspect]
     Active Substance: SILODOSIN
     Indication: Benign prostatic hyperplasia
     Dosage: 1 DOSAGE FORM, DAILY AT NIGHT (03 WEEKS AGO) FOR 1 MONTH
     Route: 048

REACTIONS (1)
  - Myalgia [Recovered/Resolved]
